FAERS Safety Report 24977933 (Version 1)
Quarter: 2025Q1

REPORT INFORMATION
  Report Type: Spontaneous
  Country: CN (occurrence: CN)
  Receive Date: 20250217
  Receipt Date: 20250217
  Transmission Date: 20250409
  Serious: Yes (Hospitalization)
  Sender: PFIZER
  Company Number: CN-PFIZER INC-PV202500018002

PATIENT
  Age: 69 Year
  Sex: Female
  Weight: 84 kg

DRUGS (2)
  1. ZYVOX [Suspect]
     Active Substance: LINEZOLID
     Indication: Symptomatic treatment
     Dosage: 600 MG, 1X/DAY
     Route: 048
     Dates: start: 20241223, end: 20241223
  2. VANCOCIN [Concomitant]
     Active Substance: VANCOMYCIN HYDROCHLORIDE
     Indication: Symptomatic treatment
     Dosage: 1 G, 2X/DAY
     Route: 048
     Dates: start: 20241124, end: 20241222

REACTIONS (4)
  - Drug eruption [Recovering/Resolving]
  - Condition aggravated [Recovering/Resolving]
  - Chest discomfort [Recovering/Resolving]
  - Dyspnoea [Recovering/Resolving]

NARRATIVE: CASE EVENT DATE: 20241201
